FAERS Safety Report 5782224-4 (Version None)
Quarter: 2008Q2

REPORT INFORMATION
  Report Type: 
  Country: None (occurrence: None)
  Receive Date: 20080623
  Receipt Date: 20080502
  Transmission Date: 20081010
  Serious: No
  Sender: FDA-Public Use
  Company Number: US-ABBOTT-08P-163-0450199-00

PATIENT
  Sex: Male
  Weight: 75.818 kg

DRUGS (2)
  1. ULTANE [Suspect]
     Indication: DRUG USE FOR UNKNOWN INDICATION
     Dosage: VAPORIZERS
     Route: 055
     Dates: start: 20080418, end: 20080502
  2. OMEPRAZOLE [Concomitant]
     Indication: GASTROOESOPHAGEAL REFLUX DISEASE
     Dosage: 40 MG DAILY, AS NEEDED
     Route: 048

REACTIONS (3)
  - FEELING ABNORMAL [None]
  - HEADACHE [None]
  - HYPERTENSION [None]
